FAERS Safety Report 7994155-X (Version None)
Quarter: 2011Q4

REPORT INFORMATION
  Report Type: 
  Country: None (occurrence: None)
  Receive Date: 20111220
  Receipt Date: 20111215
  Transmission Date: 20120403
  Serious: No
  Sender: FDA-Public Use
  Company Number: US-BAYER-2011-121035

PATIENT
  Sex: Female

DRUGS (1)
  1. SAFYRAL [Suspect]

REACTIONS (1)
  - PHARYNGITIS [None]
